FAERS Safety Report 6655165-8 (Version None)
Quarter: 2010Q1

REPORT INFORMATION
  Report Type: 
  Country: None (occurrence: None)
  Receive Date: 20100329
  Receipt Date: 20100322
  Transmission Date: 20100710
  Serious: Yes (Hospitalization)
  Sender: FDA-Public Use
  Company Number: IT-B.I. PHARMACEUTICALS,INC./RIDGEFIELD-2010-IT-00066IT

PATIENT
  Sex: Female

DRUGS (3)
  1. VIRAMUNE [Suspect]
     Indication: HIV INFECTION
     Dosage: 400 MG
     Route: 048
     Dates: start: 20100202, end: 20100218
  2. TACHIPIRINA [Suspect]
     Indication: HYPERPYREXIA
     Dosage: 3 G
     Route: 048
     Dates: start: 20100216, end: 20100217
  3. KIVEXA [Concomitant]
     Indication: HIV INFECTION
     Dosage: RT: 300+600 MG
     Route: 048
     Dates: start: 20100202, end: 20100218

REACTIONS (8)
  - ASTHENIA [None]
  - HEADACHE [None]
  - HEPATITIS ACUTE [None]
  - HYPERPYREXIA [None]
  - NAUSEA [None]
  - PRURITUS [None]
  - RASH PAPULAR [None]
  - VOMITING [None]
